FAERS Safety Report 24412986 (Version 2)
Quarter: 2024Q4

REPORT INFORMATION
  Report Type: Spontaneous
  Country: SA (occurrence: SA)
  Receive Date: 20241008
  Receipt Date: 20241011
  Transmission Date: 20250115
  Serious: Yes (Hospitalization)
  Sender: PFIZER
  Company Number: SA-MLMSERVICE-20241003-PI211657-00128-1

PATIENT
  Age: 19 Year
  Sex: Male

DRUGS (11)
  1. VINBLASTINE [Suspect]
     Active Substance: VINBLASTINE
     Indication: Hodgkin^s disease mixed cellularity stage IV
     Dosage: INFUSION, WHICH COULD LAST UP TO 2-4 H/FINISHED ALL SIX CYCLES
     Route: 042
     Dates: start: 201904, end: 20190925
  2. ADRIAMYCIN [Suspect]
     Active Substance: DOXORUBICIN HYDROCHLORIDE
     Indication: Hodgkin^s disease mixed cellularity stage IV
     Dosage: INFUSION, WHICH COULD LAST UP TO 2-4 H/FINISHED ALL SIX CYCLES
     Route: 042
     Dates: start: 201904, end: 20190925
  3. DACARBAZINE [Suspect]
     Active Substance: DACARBAZINE
     Indication: Hodgkin^s disease mixed cellularity stage IV
     Dosage: INFUSION, WHICH COULD LAST UP TO 2-4 H/FINISHED ALL SIX CYCLES
     Route: 042
     Dates: start: 201904, end: 20190925
  4. BLEOMYCIN SULFATE [Suspect]
     Active Substance: BLEOMYCIN SULFATE
     Indication: Hodgkin^s disease mixed cellularity stage IV
     Dosage: INFUSION, WHICH COULD LAST UP TO 2-4 H/FINISHED ALL SIX CYCLES
     Route: 042
     Dates: start: 201904, end: 2019
  5. BLEOMYCIN SULFATE [Suspect]
     Active Substance: BLEOMYCIN SULFATE
     Dosage: UNK
  6. ATOMOXETINE HYDROCHLORIDE [Concomitant]
     Active Substance: ATOMOXETINE HYDROCHLORIDE
     Indication: Autism spectrum disorder
     Dosage: 60 MG, DAILY
  7. METOCLOPRAMIDE [Concomitant]
     Active Substance: METOCLOPRAMIDE
     Indication: Chemotherapy side effect prophylaxis
     Dosage: UNK
     Dates: start: 201904, end: 2019
  8. GRANISETRON [Concomitant]
     Active Substance: GRANISETRON
     Indication: Chemotherapy side effect prophylaxis
     Dosage: UNK
     Dates: start: 201904, end: 2019
  9. ARIPIPRAZOLE [Concomitant]
     Active Substance: ARIPIPRAZOLE
     Indication: Autism spectrum disorder
     Dosage: 20 MG, 1X/DAY
     Route: 048
  10. RISPERIDONE [Concomitant]
     Active Substance: RISPERIDONE
     Indication: Autism spectrum disorder
     Dosage: 2 MG, DAILY
  11. DIPHENHYDRAMINE [Concomitant]
     Active Substance: DIPHENHYDRAMINE
     Indication: Sedation
     Route: 042

REACTIONS (3)
  - Lower respiratory tract infection [Recovered/Resolved]
  - Febrile neutropenia [Recovered/Resolved]
  - Neutropenia [Recovered/Resolved]

NARRATIVE: CASE EVENT DATE: 20190101
